FAERS Safety Report 25733920 (Version 2)
Quarter: 2025Q3

REPORT INFORMATION
  Report Type: Report from Study
  Country: GB (occurrence: GB)
  Receive Date: 20250828
  Receipt Date: 20250904
  Transmission Date: 20251020
  Serious: Yes (Other)
  Sender: SAMSUNG BIOEPIS
  Company Number: GB-SAMSUNG BIOEPIS-SB-2025-28834

PATIENT
  Age: 76 Year
  Sex: Male

DRUGS (1)
  1. ETANERCEPT [Suspect]
     Active Substance: ETANERCEPT
     Indication: Rheumatoid arthritis
     Dosage: PATIENT TOOK LAST DOSE ON 19-AUG-2025;
     Route: 058
     Dates: start: 20250805

REACTIONS (10)
  - Gastrointestinal haemorrhage [Unknown]
  - Abdominal pain upper [Unknown]
  - Headache [Unknown]
  - Nausea [Unknown]
  - Fatigue [Unknown]
  - Mouth ulceration [Recovering/Resolving]
  - Oral herpes [Recovering/Resolving]
  - Faeces discoloured [Unknown]
  - Insomnia [Recovering/Resolving]
  - Cardiac disorder [Unknown]
